FAERS Safety Report 6827759-8 (Version None)
Quarter: 2010Q3

REPORT INFORMATION
  Report Type: 
  Country: None (occurrence: None)
  Receive Date: 20100709
  Receipt Date: 20100628
  Transmission Date: 20110219
  Serious: No
  Sender: FDA-Public Use
  Company Number: B0625236A

PATIENT
  Sex: Female
  Weight: 48 kg

DRUGS (3)
  1. RELENZA [Suspect]
     Indication: ANTIVIRAL PROPHYLAXIS
     Dosage: 10MG PER DAY
     Route: 055
     Dates: start: 20100108, end: 20100112
  2. INFLUENZA HA VACCINE [Concomitant]
     Indication: ANTIVIRAL PROPHYLAXIS
     Dates: start: 20091127, end: 20091127
  3. RITODRINE HYDROCHLORIDE [Concomitant]
     Dosage: 4IUAX PER DAY
     Dates: start: 20100122, end: 20100301

REACTIONS (2)
  - DELIVERY [None]
  - DRUG EXPOSURE DURING PREGNANCY [None]
